FAERS Safety Report 15960393 (Version 1)
Quarter: 2019Q1

REPORT INFORMATION
  Report Type: Spontaneous
  Country: US (occurrence: US)
  Receive Date: 20190213
  Receipt Date: 20190213
  Transmission Date: 20190417
  Serious: Yes (Disabling)
  Sender: FDA-Public Use
  Company Number: None

PATIENT
  Age: 59 Year
  Sex: Female
  Weight: 65.25 kg

DRUGS (11)
  1. AZITHROMYCIN 250 MG TAB; GENERIC FOR ZITHROMAX Z-PACK 250 MG [Suspect]
     Active Substance: AZITHROMYCIN ANHYDROUS
     Indication: UPPER RESPIRATORY TRACT INFECTION
     Dosage: 2 TABLET(S);OTHER FREQUENCY:2 TABS, THEN 1 TAB;?
     Route: 048
     Dates: start: 20190131, end: 20190203
  2. LORAZEPAM. [Concomitant]
     Active Substance: LORAZEPAM
  3. THYROID TAB [Concomitant]
  4. PROGESTERONE. [Concomitant]
     Active Substance: PROGESTERONE
  5. PROBIOTIC [Concomitant]
     Active Substance: PROBIOTICS NOS
  6. MULTI-VITAMIN [Concomitant]
     Active Substance: .ALPHA.-TOCOPHEROL ACETATE, DL-\ASCORBIC ACID\CYANOCOBALAMIN\FLUORIDE ION\FOLIC ACID\NIACIN\PYRIDOXINE\RIBOFLAVIN\THIAMINE\VITAMIN A\VITAMIN D
  7. VITAMIN D3 [Concomitant]
     Active Substance: CHOLECALCIFEROL
  8. GLUCOSAMINE SULFATE [Concomitant]
     Active Substance: GLUCOSAMINE SULFATE
  9. COLOSTRUM POWDER [Concomitant]
  10. HORMONAL CREAM (E3/E2/DHEA/TESTOSTERONE) [Concomitant]
  11. PREGNENOLONE [Concomitant]
     Active Substance: PREGNENOLONE

REACTIONS (3)
  - Rash erythematous [None]
  - Burning sensation [None]
  - Rash papular [None]

NARRATIVE: CASE EVENT DATE: 20190202
